FAERS Safety Report 9643086 (Version 3)
Quarter: 2013Q4

REPORT INFORMATION
  Report Type: Spontaneous
  Country: US (occurrence: US)
  Receive Date: 20131024
  Receipt Date: 20131104
  Transmission Date: 20140711
  Serious: Yes (Other)
  Sender: FDA-Public Use
  Company Number: US-JNJFOC-20131010319

PATIENT
  Age: 85 Year
  Sex: Female
  Weight: 73.03 kg

DRUGS (6)
  1. XARELTO [Suspect]
     Indication: PULMONARY EMBOLISM
     Route: 048
  2. XARELTO [Suspect]
     Indication: PULMONARY EMBOLISM
     Route: 048
  3. CARDIZEM [Concomitant]
     Route: 065
  4. TOPROL [Concomitant]
     Route: 065
  5. LOSARTAN [Concomitant]
     Route: 065
  6. HYDROCHLOROTHIAZIDE [Concomitant]
     Route: 065

REACTIONS (2)
  - Haemarthrosis [Recovered/Resolved]
  - Creatinine renal clearance decreased [Unknown]
